FAERS Safety Report 19889894 (Version 1)
Quarter: 2021Q3

REPORT INFORMATION
  Report Type: Report from Study
  Country: CA (occurrence: CA)
  Receive Date: 20210928
  Receipt Date: 20210928
  Transmission Date: 20211014
  Serious: Yes (Hospitalization, Other)
  Sender: FDA-Public Use
  Company Number: CA-HLS-202108464

PATIENT
  Age: 56 Year
  Sex: Female

DRUGS (1)
  1. CLOZARIL [Suspect]
     Active Substance: CLOZAPINE
     Indication: SCHIZOAFFECTIVE DISORDER
     Dosage: 200 MG
     Route: 048

REACTIONS (10)
  - Sleep apnoea syndrome [Unknown]
  - Urinary retention [Unknown]
  - Salivary hypersecretion [Unknown]
  - Psychotic disorder [Unknown]
  - Faecaloma [Unknown]
  - Constipation [Unknown]
  - Dysuria [Unknown]
  - Sleep disorder [Unknown]
  - Pollakiuria [Unknown]
  - Urinary tract infection [Unknown]

NARRATIVE: CASE EVENT DATE: 202108
